FAERS Safety Report 12522738 (Version 2)
Quarter: 2016Q3

REPORT INFORMATION
  Report Type: Spontaneous
  Country: US (occurrence: US)
  Receive Date: 20160701
  Receipt Date: 20160909
  Transmission Date: 20161109
  Serious: No
  Sender: FDA-Public Use
  Company Number: US-INCYTE CORPORATION-2016IN003826

PATIENT
  Sex: Male

DRUGS (3)
  1. JAKAFI [Suspect]
     Active Substance: RUXOLITINIB
     Indication: POLYCYTHAEMIA VERA
     Dosage: 10 MG, BID (TWO 5 MG TABLETS)
     Route: 048
     Dates: start: 20160318
  2. LISINOPRIL. [Concomitant]
     Active Substance: LISINOPRIL
     Indication: PRODUCT USED FOR UNKNOWN INDICATION
  3. ASPIRIN                            /00002701/ [Concomitant]
     Active Substance: ASPIRIN
     Indication: PRODUCT USED FOR UNKNOWN INDICATION

REACTIONS (3)
  - Drug dose omission [Unknown]
  - Platelet count increased [Unknown]
  - Contusion [Unknown]

NARRATIVE: CASE EVENT DATE: 2016
